FAERS Safety Report 25636989 (Version 1)
Quarter: 2025Q3

REPORT INFORMATION
  Report Type: Spontaneous
  Country: JP (occurrence: JP)
  Receive Date: 20250804
  Receipt Date: 20250804
  Transmission Date: 20251021
  Serious: Yes (Other)
  Sender: BEIGENE
  Company Number: JP-BEIGENE-BGN-2025-012670

PATIENT
  Age: 4 Decade

DRUGS (1)
  1. BRUKINSA [Suspect]
     Active Substance: ZANUBRUTINIB
     Indication: Waldenstrom^s macroglobulinaemia
     Dosage: 80 MILLIGRAM, BID

REACTIONS (1)
  - Pancytopenia [Unknown]
